FAERS Safety Report 13485402 (Version 1)
Quarter: 2017Q2

REPORT INFORMATION
  Report Type: Spontaneous
  Country: US (occurrence: US)
  Receive Date: 20170425
  Receipt Date: 20170425
  Transmission Date: 20170830
  Serious: No
  Sender: FDA-Public Use
  Company Number: US-AMGEN-USASP2017060891

PATIENT
  Age: 68 Year
  Sex: Female

DRUGS (17)
  1. ENBREL [Suspect]
     Active Substance: ETANERCEPT
     Indication: RHEUMATOID ARTHRITIS
     Dosage: 50 MG, QWK
     Route: 058
     Dates: start: 201703
  2. ASTAXANTHIN [Concomitant]
  3. ALEVE [Concomitant]
     Active Substance: NAPROXEN SODIUM
  4. MAGNESIUM [Concomitant]
     Active Substance: MAGNESIUM
  5. METHOTREXATE. [Concomitant]
     Active Substance: METHOTREXATE
  6. CALCIUM [Concomitant]
     Active Substance: CALCIUM
  7. CEFTIN [Concomitant]
     Active Substance: CEFUROXIME AXETIL
  8. REGLAN [Concomitant]
     Active Substance: METOCLOPRAMIDE HYDROCHLORIDE
  9. SYNTHROID [Concomitant]
     Active Substance: LEVOTHYROXINE SODIUM
  10. ZYRTEC [Concomitant]
     Active Substance: CETIRIZINE HYDROCHLORIDE
  11. DIAMOX SEQUELS [Concomitant]
     Active Substance: ACETAZOLAMIDE
  12. TOPAMAX [Concomitant]
     Active Substance: TOPIRAMATE
  13. VITAMIN B12 [Concomitant]
     Active Substance: CYANOCOBALAMIN
  14. FOLIC ACID. [Concomitant]
     Active Substance: FOLIC ACID
  15. VITAMIN D3 [Concomitant]
     Active Substance: CHOLECALCIFEROL
  16. CLARITIN-D NOS [Concomitant]
     Active Substance: LORATADINE\PSEUDOEPHEDRINE SULFATE
  17. PAMELOR [Concomitant]
     Active Substance: NORTRIPTYLINE HYDROCHLORIDE

REACTIONS (4)
  - Headache [Unknown]
  - Respiratory tract congestion [Not Recovered/Not Resolved]
  - Viral infection [Not Recovered/Not Resolved]
  - Injection site mass [Unknown]

NARRATIVE: CASE EVENT DATE: 2017
